FAERS Safety Report 24884180 (Version 1)
Quarter: 2025Q1

REPORT INFORMATION
  Report Type: Spontaneous
  Country: US (occurrence: US)
  Receive Date: 20250124
  Receipt Date: 20250124
  Transmission Date: 20250408
  Serious: No
  Sender: GLAXOSMITHKLINE
  Company Number: US-GSKCCFUS-Case-02196623_AE-120722

PATIENT
  Sex: Male

DRUGS (1)
  1. JEMPERLI [Suspect]
     Active Substance: DOSTARLIMAB-GXLY
     Indication: Product used for unknown indication
     Dosage: 500 MG, Q4W/, 1000MG ON JANUARY 13TH
     Route: 042

REACTIONS (1)
  - Blood pressure increased [Unknown]
